FAERS Safety Report 10390594 (Version 1)
Quarter: 2014Q3

REPORT INFORMATION
  Report Type: Spontaneous
  Country: US (occurrence: US)
  Receive Date: 20140818
  Receipt Date: 20140818
  Transmission Date: 20150326
  Serious: Yes (Hospitalization, Other)
  Sender: FDA-Public Use
  Company Number: US-ACTAVIS-2014-18715

PATIENT
  Age: 69 Year
  Sex: Female

DRUGS (2)
  1. DILTIAZEM HCL ER (LA) (WATSON LABORATORIES) [Suspect]
     Active Substance: DILTIAZEM HYDROCHLORIDE
     Indication: OVERDOSE
     Dosage: UNK
     Route: 048
  2. DILTIAZEM HCL ER (LA) (WATSON LABORATORIES) [Suspect]
     Active Substance: DILTIAZEM HYDROCHLORIDE
     Indication: PRODUCT USED FOR UNKNOWN INDICATION

REACTIONS (3)
  - Overdose [Recovered/Resolved]
  - Hypotension [Recovered/Resolved]
  - Bradycardia [Recovered/Resolved]
